FAERS Safety Report 9103906 (Version 2)
Quarter: 2013Q4

REPORT INFORMATION
  Report Type: Spontaneous
  Country: None (occurrence: GB)
  Receive Date: 20130219
  Receipt Date: 20131011
  Transmission Date: 20140711
  Serious: Yes (Hospitalization)
  Sender: FDA-Public Use
  Company Number: GB-WATSON-2013-02449

PATIENT
  Age: 46 Year
  Sex: Male
  Weight: 79.37 kg

DRUGS (2)
  1. DISULFIRAM (UNKNOWN) [Suspect]
     Indication: ALCOHOLISM
     Route: 048
     Dates: start: 20120711
  2. CLARITHROMYCIN (UNKNOWN) [Interacting]
     Indication: LOWER RESPIRATORY TRACT INFECTION
     Dosage: 500 MG, BID
     Route: 048
     Dates: start: 20121228, end: 20130105

REACTIONS (4)
  - Gait disturbance [Recovered/Resolved]
  - Confusional state [Recovered/Resolved]
  - Memory impairment [Recovered/Resolved]
  - Drug interaction [Unknown]
